FAERS Safety Report 5154872-6 (Version None)
Quarter: 2006Q4

REPORT INFORMATION
  Report Type: 
  Country: None (occurrence: None)
  Receive Date: 20061121
  Receipt Date: 20051013
  Transmission Date: 20070319
  Serious: Yes (Death)
  Sender: FDA-Public Use
  Company Number: PK-BAYER-200513508GDS

PATIENT
  Sex: Male

DRUGS (1)
  1. CIPROFLOXACIN [Suspect]
     Indication: POSTOPERATIVE CARE
     Route: 048

REACTIONS (4)
  - BLISTER [None]
  - RASH [None]
  - RECURRING SKIN BOILS [None]
  - STEVENS-JOHNSON SYNDROME [None]
